FAERS Safety Report 8271663-8 (Version None)
Quarter: 2012Q2

REPORT INFORMATION
  Report Type: 
  Country: None (occurrence: None)
  Receive Date: 20120410
  Receipt Date: 20120403
  Transmission Date: 20120825
  Serious: Yes (Hospitalization, Other)
  Sender: FDA-Public Use
  Company Number: GB-BRISTOL-MYERS SQUIBB COMPANY-16443798

PATIENT
  Age: 70 Year
  Sex: Male

DRUGS (9)
  1. GLICLAZIDE [Suspect]
     Indication: TYPE 2 DIABETES MELLITUS
     Dosage: M/R TABS
  2. ASPIRIN [Suspect]
     Dosage: 1 DF : ={100MG
  3. PLACEBO [Suspect]
     Indication: TYPE 2 DIABETES MELLITUS
     Dates: start: 20101213, end: 20120220
  4. METFORMIN HCL [Suspect]
     Indication: TYPE 2 DIABETES MELLITUS
  5. WARFARIN SODIUM [Suspect]
     Dates: start: 20110617
  6. BECLOMETHASONE DIPROPIONATE [Concomitant]
     Dosage: 1 DF: 100 UNITS NOS
     Dates: start: 20110920
  7. BLINDED: SAXAGLIPTIN [Suspect]
     Indication: TYPE 2 DIABETES MELLITUS
     Dosage: 13DEC10-19SEP11,04OCT11-20FEB12
     Dates: start: 20101213, end: 20120220
  8. SPIRONOLACTONE [Suspect]
     Dosage: 50MG TABS
     Dates: start: 20110830
  9. NEBIVOLOL [Concomitant]
     Dates: start: 20110920

REACTIONS (4)
  - RENAL IMPAIRMENT [None]
  - HYPERKALAEMIA [None]
  - GASTRIC ULCER HAEMORRHAGE [None]
  - ANAEMIA [None]
